FAERS Safety Report 7592405-5 (Version None)
Quarter: 2011Q3

REPORT INFORMATION
  Report Type: 
  Country: None (occurrence: None)
  Receive Date: 20110705
  Receipt Date: 20110705
  Transmission Date: 20111222
  Serious: Yes (Hospitalization)
  Sender: FDA-Public Use
  Company Number: None

PATIENT
  Age: 25 Year
  Sex: Male
  Weight: 130.6 kg

DRUGS (2)
  1. RISPERDAL [Suspect]
     Dosage: RISPERDAL 4MG PO QHS
     Route: 048
  2. SEROQUEL [Suspect]
     Dosage: SEROQUEL 200 PO QHS
     Route: 048

REACTIONS (2)
  - DEEP VEIN THROMBOSIS [None]
  - PULMONARY EMBOLISM [None]
